FAERS Safety Report 6581836-8 (Version None)
Quarter: 2010Q1

REPORT INFORMATION
  Report Type: 
  Country: None (occurrence: None)
  Receive Date: 20100211
  Receipt Date: 20100211
  Transmission Date: 20100710
  Serious: No
  Sender: FDA-Public Use
  Company Number: None

PATIENT
  Age: 48 Year
  Sex: Female
  Weight: 111.5849 kg

DRUGS (2)
  1. TYLENOL-500 [Suspect]
     Indication: ARTHRALGIA
     Dosage: 2 CAPS 650MG EACH TOOK ONE TIME ORAL
     Route: 048
     Dates: start: 20100122
  2. TYLENOL-500 [Suspect]
     Indication: INJURY
     Dosage: 2 CAPS 650MG EACH TOOK ONE TIME ORAL
     Route: 048
     Dates: start: 20100122

REACTIONS (5)
  - ABDOMINAL PAIN [None]
  - DIZZINESS [None]
  - FATIGUE [None]
  - FLATULENCE [None]
  - NAUSEA [None]
